FAERS Safety Report 7938979-3 (Version None)
Quarter: 2011Q4

REPORT INFORMATION
  Report Type: 
  Country: None (occurrence: None)
  Receive Date: 20111124
  Receipt Date: 20111122
  Transmission Date: 20120403
  Serious: Yes (Other)
  Sender: FDA-Public Use
  Company Number: US-PFIZER INC-2011286651

PATIENT
  Sex: Female
  Weight: 49.887 kg

DRUGS (1)
  1. CHANTIX [Suspect]
     Dosage: UNK
     Dates: start: 20111101

REACTIONS (6)
  - RASH [None]
  - NERVOUSNESS [None]
  - OEDEMA PERIPHERAL [None]
  - PANIC REACTION [None]
  - CONTUSION [None]
  - FEELING ABNORMAL [None]
